FAERS Safety Report 5950985-7 (Version None)
Quarter: 2008Q4

REPORT INFORMATION
  Report Type: 
  Country: None (occurrence: None)
  Receive Date: 20081110
  Receipt Date: 20081028
  Transmission Date: 20090506
  Serious: Yes (Hospitalization, Other)
  Sender: FDA-Public Use
  Company Number: 235831J08USA

PATIENT
  Age: 37 Year
  Sex: Female

DRUGS (6)
  1. REBIF [Suspect]
     Indication: MULTIPLE SCLEROSIS
     Dosage: 44 MCG, 3 IN 1 WEEKS, SUBCUTANEOUS
     Route: 058
     Dates: start: 20071029
  2. UNSPECIFIED INTRAVENOUS STEROIDS (CORTICOSTEROID NOS) [Suspect]
     Dosage: INTRAVENOUS
     Route: 042
     Dates: start: 20071029
  3. SOMA [Concomitant]
  4. NEURONTIN [Concomitant]
  5. TIZANIDINE HCL [Concomitant]
  6. LORTAB [Concomitant]

REACTIONS (2)
  - GASTRIC HAEMORRHAGE [None]
  - MALAISE [None]
